FAERS Safety Report 11570790 (Version 4)
Quarter: 2015Q4

REPORT INFORMATION
  Report Type: Spontaneous
  Country: JP (occurrence: JP)
  Receive Date: 20150929
  Receipt Date: 20151106
  Transmission Date: 20160304
  Serious: Yes (Hospitalization, Other)
  Sender: FDA-Public Use
  Company Number: JP-GLAXOSMITHKLINE-JP2015JPN132360

PATIENT
  Age: 23 Year
  Sex: Female
  Weight: 45 kg

DRUGS (2)
  1. VALTREX [Suspect]
     Active Substance: VALACYCLOVIR HYDROCHLORIDE
     Indication: HERPES ZOSTER
     Dosage: 500 MG, BID
     Route: 048
     Dates: start: 20150911, end: 20150913
  2. LOXONIN [Concomitant]
     Active Substance: LOXOPROFEN SODIUM
     Indication: DYSMENORRHOEA
     Dosage: UNK, PRN

REACTIONS (11)
  - Abdominal pain [Recovering/Resolving]
  - Vomiting [Recovering/Resolving]
  - Acute kidney injury [Recovered/Resolved]
  - Laboratory test abnormal [Recovered/Resolved]
  - Nausea [Recovering/Resolving]
  - Nephropathy [Recovered/Resolved]
  - Dehydration [Recovering/Resolving]
  - Blood creatinine increased [Recovered/Resolved]
  - Hypophagia [Recovered/Resolved]
  - Back pain [Recovering/Resolving]
  - Renal disorder [Recovered/Resolved]

NARRATIVE: CASE EVENT DATE: 201509
